FAERS Safety Report 15337178 (Version 3)
Quarter: 2018Q3

REPORT INFORMATION
  Report Type: Report from Study
  Country: CO (occurrence: CO)
  Receive Date: 20180831
  Receipt Date: 20180926
  Transmission Date: 20181010
  Serious: Yes (Hospitalization, Other)
  Sender: FDA-Public Use
  Company Number: CO-AMGEN-COLSL2018118013

PATIENT
  Age: 78 Year
  Sex: Male

DRUGS (2)
  1. NPLATE [Suspect]
     Active Substance: ROMIPLOSTIM
     Indication: IMMUNE THROMBOCYTOPENIC PURPURA
     Dosage: 70 MUG, QWK
     Route: 058
     Dates: start: 20180814
  2. NPLATE [Suspect]
     Active Substance: ROMIPLOSTIM
     Dosage: 140 MUG, QWK
     Route: 058

REACTIONS (9)
  - Haemorrhage [Unknown]
  - Tachycardia [Recovering/Resolving]
  - Visual impairment [Recovering/Resolving]
  - Urethral haemorrhage [Recovering/Resolving]
  - Asthenia [Recovering/Resolving]
  - Chest pain [Not Recovered/Not Resolved]
  - Decreased immune responsiveness [Recovering/Resolving]
  - Vision blurred [Recovering/Resolving]
  - Dizziness [Recovering/Resolving]

NARRATIVE: CASE EVENT DATE: 2018
